FAERS Safety Report 4539452-5 (Version None)
Quarter: 2004Q4

REPORT INFORMATION
  Report Type: 
  Country: None (occurrence: None)
  Receive Date: 20041222
  Receipt Date: 20041208
  Transmission Date: 20050328
  Serious: Yes (Death)
  Sender: FDA-Public Use
  Company Number: 2004AC00902

PATIENT
  Age: 37 Year
  Sex: Female

DRUGS (5)
  1. SEROQUEL [Suspect]
     Indication: SLEEP DISORDER
     Dosage: 200 MG DAILY PO
     Route: 048
     Dates: start: 20040101
  2. LORAMET [Concomitant]
  3. PROZAC [Concomitant]
  4. PROTHIADEN [Concomitant]
  5. UNI-TRAUXENE [Concomitant]

REACTIONS (2)
  - BLOOD PROLACTIN INCREASED [None]
  - COMPLETED SUICIDE [None]
